FAERS Safety Report 6014461-8 (Version None)
Quarter: 2008Q4

REPORT INFORMATION
  Report Type: 
  Country: None (occurrence: None)
  Receive Date: 20081219
  Receipt Date: 20080620
  Transmission Date: 20090506
  Serious: No
  Sender: FDA-Public Use
  Company Number: A0735424A

PATIENT
  Age: 75 Year
  Sex: Male

DRUGS (4)
  1. AVODART [Suspect]
     Indication: DRUG USE FOR UNKNOWN INDICATION
     Route: 065
  2. UROXATRAL [Suspect]
     Dosage: 10MG PER DAY
     Route: 048
     Dates: end: 20080101
  3. METOPROLOL TARTRATE [Concomitant]
     Indication: DRUG USE FOR UNKNOWN INDICATION
     Route: 065
  4. ATORVASTATIN [Concomitant]
     Indication: DRUG USE FOR UNKNOWN INDICATION
     Route: 065

REACTIONS (7)
  - FATIGUE [None]
  - LIBIDO DECREASED [None]
  - LOSS OF LIBIDO [None]
  - NOCTURIA [None]
  - PENIS DISORDER [None]
  - RESIDUAL URINE [None]
  - URINE FLOW DECREASED [None]
